FAERS Safety Report 8533184-4 (Version None)
Quarter: 2012Q3

REPORT INFORMATION
  Report Type: 
  Country: None (occurrence: None)
  Receive Date: 20120724
  Receipt Date: 20120625
  Transmission Date: 20120928
  Serious: No
  Sender: FDA-Public Use
  Company Number: US-009507513-2012SP022381

PATIENT

DRUGS (1)
  1. DULERA [Suspect]
     Dosage: UNK

REACTIONS (2)
  - DRUG DOSE OMISSION [None]
  - DYSPNOEA [None]
